FAERS Safety Report 16200893 (Version 1)
Quarter: 2019Q2

REPORT INFORMATION
  Report Type: Spontaneous
  Country: US (occurrence: US)
  Receive Date: 20190416
  Receipt Date: 20190416
  Transmission Date: 20190711
  Serious: Yes (Other)
  Sender: FDA-Public Use
  Company Number: US-BION-007134

PATIENT
  Age: 66 Year
  Sex: Male
  Weight: 90 kg

DRUGS (3)
  1. ALEVE [Suspect]
     Active Substance: NAPROXEN SODIUM
     Indication: PAIN
     Dosage: 3PILLS 3TIMES DAILY
     Route: 048
     Dates: start: 20180405, end: 20180416
  2. PRAVASTATIN. [Concomitant]
     Active Substance: PRAVASTATIN
     Dosage: STRENGTH: 10MG
  3. LOSARTAN. [Concomitant]
     Active Substance: LOSARTAN

REACTIONS (4)
  - Overdose [Not Recovered/Not Resolved]
  - Haematochezia [Not Recovered/Not Resolved]
  - Product prescribing error [Not Recovered/Not Resolved]
  - Incorrect product administration duration [Not Recovered/Not Resolved]

NARRATIVE: CASE EVENT DATE: 20180405
